FAERS Safety Report 7872955-4 (Version None)
Quarter: 2011Q4

REPORT INFORMATION
  Report Type: 
  Country: None (occurrence: None)
  Receive Date: 20111030
  Receipt Date: 20110420
  Transmission Date: 20120403
  Serious: No
  Sender: FDA-Public Use
  Company Number: US-AMGEN-USASP2011020916

PATIENT
  Age: 60 Year
  Sex: Female

DRUGS (1)
  1. ENBREL [Suspect]
     Indication: RHEUMATOID ARTHRITIS
     Dosage: 25 MG, Q3WK
     Dates: start: 20000601

REACTIONS (7)
  - BRONCHITIS [None]
  - ABDOMINAL DISCOMFORT [None]
  - INJURY ASSOCIATED WITH DEVICE [None]
  - GRIP STRENGTH DECREASED [None]
  - RHEUMATOID ARTHRITIS [None]
  - PNEUMONIA [None]
  - FEAR OF NEEDLES [None]
